FAERS Safety Report 4874909-9 (Version None)
Quarter: 2006Q1

REPORT INFORMATION
  Report Type: 
  Country: None (occurrence: None)
  Receive Date: 20060104
  Receipt Date: 20051221
  Transmission Date: 20060701
  Serious: Yes (Life-Threatening, Hospitalization, Other)
  Sender: FDA-Public Use
  Company Number: SUS1-2005-00945

PATIENT
  Age: 28 Year
  Sex: Female

DRUGS (2)
  1. PENTASA [Suspect]
     Dosage: 1000 MG DAILY, ORAL
     Route: 048
     Dates: start: 20051107, end: 20051207
  2. AZATHIOPRINE [Suspect]
     Dosage: 100 MG DAILY, ORAL
     Route: 048
     Dates: start: 19950101, end: 20051207

REACTIONS (2)
  - DRUG INTERACTION [None]
  - NEUTROPENIA [None]
